FAERS Safety Report 6205862-3 (Version None)
Quarter: 2009Q2

REPORT INFORMATION
  Report Type: 
  Country: None (occurrence: None)
  Receive Date: 20090527
  Receipt Date: 20090504
  Transmission Date: 20091009
  Serious: No
  Sender: FDA-Public Use
  Company Number: US-ABBOTT-09P-163-0571552-00

PATIENT
  Sex: Female
  Weight: 50.848 kg

DRUGS (4)
  1. SIMCOR [Suspect]
     Indication: BLOOD CHOLESTEROL ABNORMAL
     Dosage: 1000/20MG
     Dates: start: 20080601
  2. ACCUPRIL [Concomitant]
     Indication: HYPERTENSION
  3. NEURONTIN [Concomitant]
     Indication: NEURALGIA
  4. HYDROCODONE BITARTRATE [Concomitant]
     Indication: NEURALGIA

REACTIONS (3)
  - ASPARTATE AMINOTRANSFERASE INCREASED [None]
  - DIVERTICULUM [None]
  - FAECES HARD [None]
